FAERS Safety Report 9814870 (Version 2)
Quarter: 2014Q1

REPORT INFORMATION
  Report Type: Spontaneous
  Country: JP (occurrence: JP)
  Receive Date: 20140113
  Receipt Date: 20140113
  Transmission Date: 20141002
  Serious: Yes (Other)
  Sender: FDA-Public Use
  Company Number: JP-GLAXOSMITHKLINE-B0652765A

PATIENT
  Age: 61 Year
  Sex: Male

DRUGS (8)
  1. LAMICTAL [Suspect]
     Indication: EPILEPSY
     Dosage: 25MG PER DAY
     Route: 048
     Dates: start: 20100209, end: 20100222
  2. LAMICTAL [Suspect]
     Indication: EPILEPSY
     Dosage: 25MG PER DAY
     Route: 048
     Dates: start: 20100223, end: 20100309
  3. DEPAKENE-R [Concomitant]
     Indication: EPILEPSY
     Dosage: 200MG TWICE PER DAY
     Route: 048
     Dates: start: 20100209
  4. DEPAKENE-R [Concomitant]
     Indication: EPILEPSY
     Dosage: 200MG TWICE PER DAY
     Route: 048
     Dates: start: 20100223
  5. ALEVIATIN [Concomitant]
     Indication: LIVER DISORDER
     Route: 065
     Dates: start: 200907
  6. TEGRETOL [Concomitant]
     Indication: LIVER DISORDER
     Route: 048
     Dates: start: 200911
  7. MYSTAN [Concomitant]
     Indication: LIVER DISORDER
     Route: 048
     Dates: start: 201001
  8. EXCEGRAN [Concomitant]
     Indication: LIVER DISORDER
     Route: 048
     Dates: start: 201001

REACTIONS (6)
  - Drug reaction with eosinophilia and systemic symptoms [Recovered/Resolved]
  - Skin exfoliation [Unknown]
  - Pyrexia [Unknown]
  - Rash [Unknown]
  - Generalised erythema [Unknown]
  - Erythema [Unknown]
